FAERS Safety Report 7525622-0 (Version None)
Quarter: 2011Q2

REPORT INFORMATION
  Report Type: 
  Country: None (occurrence: None)
  Receive Date: 20110606
  Receipt Date: 20110524
  Transmission Date: 20111010
  Serious: Yes (Hospitalization)
  Sender: FDA-Public Use
  Company Number: PHHY2011DE44684

PATIENT
  Sex: Female

DRUGS (1)
  1. FAMVIR [Suspect]
     Indication: GENITAL HERPES
     Dosage: UNK
     Route: 048

REACTIONS (4)
  - JAUNDICE [None]
  - LIVER INJURY [None]
  - TRANSAMINASES INCREASED [None]
  - MALAISE [None]
